FAERS Safety Report 9990792 (Version 1)
Quarter: 2014Q1

REPORT INFORMATION
  Report Type: Report from Study
  Country: US (occurrence: US)
  Receive Date: 20140310
  Receipt Date: 20140310
  Transmission Date: 20141002
  Serious: No
  Sender: FDA-Public Use
  Company Number: US-ABBVIE-13P-163-1134682-00

PATIENT
  Age: 47 Year
  Sex: Female
  Weight: 71.73 kg

DRUGS (1)
  1. HUMIRA [Suspect]
     Indication: PUSTULAR PSORIASIS
     Route: 058
     Dates: start: 201307

REACTIONS (4)
  - Abdominal pain [Not Recovered/Not Resolved]
  - Headache [Not Recovered/Not Resolved]
  - Back pain [Not Recovered/Not Resolved]
  - Psoriasis [Not Recovered/Not Resolved]
